FAERS Safety Report 17599455 (Version 4)
Quarter: 2022Q4

REPORT INFORMATION
  Report Type: Spontaneous
  Country: ES (occurrence: ES)
  Receive Date: 20200330
  Receipt Date: 20221107
  Transmission Date: 20230112
  Serious: Yes (Hospitalization, Other)
  Sender: FDA-Public Use
  Company Number: ES-002147023-NVSC2020ES063786

PATIENT
  Age: 71 Year
  Sex: Male

DRUGS (3)
  1. METHOTREXATE [Suspect]
     Active Substance: METHOTREXATE
     Indication: Pityriasis lichenoides et varioliformis acuta
     Dosage: 7.5 MG, QW
     Route: 065
  2. METHOTREXATE [Suspect]
     Active Substance: METHOTREXATE
     Dosage: 7.5 MG, Q12H
     Route: 065
  3. FOLIC ACID [Concomitant]
     Active Substance: FOLIC ACID
     Indication: Pityriasis lichenoides et varioliformis acuta
     Dosage: UNK
     Route: 065

REACTIONS (10)
  - Asthenia [Unknown]
  - Ulcer [Unknown]
  - Odynophagia [Unknown]
  - Alopecia [Unknown]
  - Stomatitis [Unknown]
  - Diarrhoea [Unknown]
  - Drug ineffective [Unknown]
  - Pancytopenia [Unknown]
  - Toxicity to various agents [Unknown]
  - Product use in unapproved indication [Unknown]
